FAERS Safety Report 14132370 (Version 1)
Quarter: 2017Q4

REPORT INFORMATION
  Report Type: Spontaneous
  Country: HK (occurrence: HK)
  Receive Date: 20171027
  Receipt Date: 20171027
  Transmission Date: 20180321
  Serious: Yes (Hospitalization)
  Sender: FDA-Public Use
  Company Number: HK-VISTAPHARM, INC.-VER201710-000928

PATIENT
  Age: 21 Year
  Sex: Female

DRUGS (1)
  1. METHADONE [Suspect]
     Active Substance: METHADONE HYDROCHLORIDE
     Indication: PRODUCT USED FOR UNKNOWN INDICATION
     Dates: start: 201007

REACTIONS (7)
  - Pneumonia [Recovered/Resolved]
  - Hypotension [Recovered/Resolved]
  - Accidental overdose [Unknown]
  - Coma [Recovered/Resolved]
  - Respiratory depression [Recovered/Resolved]
  - Hypoglycaemia [Recovered/Resolved]
  - Electrocardiogram QT prolonged [Recovered/Resolved]
